FAERS Safety Report 7897450-8 (Version None)
Quarter: 2011Q4

REPORT INFORMATION
  Report Type: 
  Country: None (occurrence: None)
  Receive Date: 20111107
  Receipt Date: 20111028
  Transmission Date: 20120403
  Serious: Yes (Hospitalization)
  Sender: FDA-Public Use
  Company Number: TH-ABBOTT-11P-155-0866544-00

PATIENT
  Sex: Female
  Weight: 55 kg

DRUGS (7)
  1. ALESSE [Concomitant]
     Indication: PRODUCT USED FOR UNKNOWN INDICATION
     Route: 048
     Dates: start: 20091201
  2. ATAZANAVIR [Concomitant]
     Indication: HIV INFECTION
     Route: 048
     Dates: start: 20101104, end: 20110214
  3. RITONAVIR SOFT GELATIN CAPSULES (BLINDED) [Suspect]
     Indication: HIV INFECTION
     Route: 048
     Dates: start: 20101104, end: 20110214
  4. LEVONORGESTREL + ETHINYL ESTRADIOL [Concomitant]
     Indication: CONTRACEPTION
     Route: 048
     Dates: start: 20091201
  5. ACETAMINOPHEN [Concomitant]
     Indication: UPPER RESPIRATORY TRACT INFECTION
     Route: 048
     Dates: start: 20101228, end: 20101230
  6. TRUVADA [Concomitant]
     Indication: HIV INFECTION
     Route: 048
     Dates: start: 20101104, end: 20110214
  7. DEXTROMETHORPHAN HYDROBROMIDE [Concomitant]
     Indication: UPPER RESPIRATORY TRACT INFECTION
     Route: 048
     Dates: start: 20101229, end: 20101230

REACTIONS (1)
  - PREMATURE DELIVERY [None]
